FAERS Safety Report 14614083 (Version 1)
Quarter: 2018Q1

REPORT INFORMATION
  Report Type: Spontaneous
  Country: US (occurrence: US)
  Receive Date: 20180308
  Receipt Date: 20180308
  Transmission Date: 20180509
  Serious: Yes (Death, Hospitalization)
  Sender: FDA-Public Use
  Company Number: None

PATIENT
  Age: 47 Year
  Sex: Male
  Weight: 120 kg

DRUGS (4)
  1. CYTARABINE. [Suspect]
     Active Substance: CYTARABINE
     Dates: end: 20180131
  2. VINCRISTINE SULFATE. [Suspect]
     Active Substance: VINCRISTINE SULFATE
     Dates: end: 20180131
  3. DAUNORUBICIN [Suspect]
     Active Substance: DAUNORUBICIN
     Dates: end: 20180131
  4. DEXAMETHASONE. [Suspect]
     Active Substance: DEXAMETHASONE
     Dates: end: 20180206

REACTIONS (29)
  - Seizure [None]
  - Lung disorder [None]
  - Shock [None]
  - Atelectasis [None]
  - Continuous haemodiafiltration [None]
  - Fall [None]
  - Acute kidney injury [None]
  - Acidosis [None]
  - Loss of consciousness [None]
  - Splenic rupture [None]
  - Splenomegaly [None]
  - Hyperhidrosis [None]
  - Multiple organ dysfunction syndrome [None]
  - Acute myocardial infarction [None]
  - Intra-abdominal fluid collection [None]
  - Intra-abdominal haemorrhage [None]
  - Blood lactic acid increased [None]
  - Pleural effusion [None]
  - Acute respiratory failure [None]
  - Intra-abdominal haematoma [None]
  - Atrial flutter [None]
  - Bradycardia [None]
  - Neck pain [None]
  - Anxiety [None]
  - Blood prolactin decreased [None]
  - Lung infiltration [None]
  - Jaundice [None]
  - Respiratory distress [None]
  - Lung consolidation [None]

NARRATIVE: CASE EVENT DATE: 20180206
